FAERS Safety Report 7792394-4 (Version None)
Quarter: 2011Q3

REPORT INFORMATION
  Report Type: 
  Country: None (occurrence: None)
  Receive Date: 20110930
  Receipt Date: 20110930
  Transmission Date: 20111222
  Serious: No
  Sender: FDA-Public Use
  Company Number: None

PATIENT
  Sex: Male
  Weight: 64.8644 kg

DRUGS (1)
  1. DONEPEZIL HCL [Suspect]
     Indication: DEMENTIA
     Dosage: 5 MG ONCE DAILY
     Dates: start: 20110831, end: 20110903

REACTIONS (3)
  - CHEST PAIN [None]
  - HEART RATE DECREASED [None]
  - DYSURIA [None]
